FAERS Safety Report 4405765-0 (Version None)
Quarter: 2004Q3

REPORT INFORMATION
  Report Type: 
  Country: None (occurrence: None)
  Receive Date: 20040723
  Receipt Date: 20031205
  Transmission Date: 20050211
  Serious: No
  Sender: FDA-Public Use
  Company Number: US-GLAXOSMITHKLINE-A0442175A

PATIENT
  Age: 58 Year
  Sex: Female

DRUGS (4)
  1. AVANDIA [Suspect]
     Dosage: 4MG PER DAY
     Route: 048
     Dates: start: 20031204
  2. LIPITOR [Concomitant]
  3. NORVASC [Concomitant]
  4. NASONEX [Concomitant]

REACTIONS (1)
  - BLOOD GLUCOSE DECREASED [None]
